FAERS Safety Report 5248140-1 (Version None)
Quarter: 2007Q1

REPORT INFORMATION
  Report Type: 
  Country: None (occurrence: None)
  Receive Date: 20070227
  Receipt Date: 20060302
  Transmission Date: 20070707
  Serious: No
  Sender: FDA-Public Use
  Company Number: US-BRISTOL-MYERS SQUIBB COMPANY-13301288

PATIENT
  Age: 76 Year
  Sex: Male
  Weight: 91 kg

DRUGS (7)
  1. METFORMIN HCL [Suspect]
  2. LOPRESSOR [Concomitant]
  3. ZOCOR [Concomitant]
  4. ZESTRIL [Concomitant]
  5. CARDIZEM [Concomitant]
  6. AVANDIA [Concomitant]
  7. GLYSET [Concomitant]

REACTIONS (3)
  - ABDOMINAL DISTENSION [None]
  - ABDOMINAL PAIN [None]
  - DIARRHOEA [None]
